FAERS Safety Report 25868911 (Version 1)
Quarter: 2025Q4

REPORT INFORMATION
  Report Type: Report from Study
  Country: BR (occurrence: BR)
  Receive Date: 20251001
  Receipt Date: 20251001
  Transmission Date: 20260118
  Serious: Yes (Death, Other)
  Sender: EMD SERONO INC
  Company Number: BR-Merck Healthcare KGaA-2025049021

PATIENT
  Age: 53 Year
  Sex: Female

DRUGS (1)
  1. INTERFERON BETA-1A [Suspect]
     Active Substance: INTERFERON BETA-1A
     Indication: Multiple sclerosis
     Dates: start: 20190701

REACTIONS (1)
  - Acute myocardial infarction [Fatal]

NARRATIVE: CASE EVENT DATE: 20250921
